FAERS Safety Report 15904855 (Version 1)
Quarter: 2019Q1

REPORT INFORMATION
  Report Type: Spontaneous
  Country: US (occurrence: US)
  Receive Date: 20190110
  Receipt Date: 20190110
  Transmission Date: 20190417
  Serious: No
  Sender: FDA-Public Use
  Company Number: None

PATIENT
  Age: 96 Year
  Sex: Male

DRUGS (2)
  1. ERLEADA [Suspect]
     Active Substance: APALUTAMIDE
     Indication: DRUG RESISTANCE
     Route: 048
     Dates: start: 20181018, end: 20190106
  2. ERLEADA [Suspect]
     Active Substance: APALUTAMIDE
     Indication: NEOPLASM MALIGNANT
     Route: 048
     Dates: start: 20181018, end: 20190106

REACTIONS (1)
  - Rash [None]
